FAERS Safety Report 12544297 (Version 1)
Quarter: 2016Q3

REPORT INFORMATION
  Report Type: Spontaneous
  Country: SE (occurrence: SE)
  Receive Date: 20160711
  Receipt Date: 20160711
  Transmission Date: 20161109
  Serious: Yes (Hospitalization)
  Sender: FDA-Public Use
  Company Number: SE-ORION CORPORATION ORION PHARMA-SPIR2016-0003

PATIENT
  Age: 57 Year
  Sex: Male

DRUGS (1)
  1. SPIRONOLACTONE (TRADE NAME UNKNOWN) [Suspect]
     Active Substance: SPIRONOLACTONE
     Route: 065

REACTIONS (3)
  - Malaise [Unknown]
  - Blood creatinine increased [Unknown]
  - Fatigue [Unknown]
